FAERS Safety Report 8395057-X (Version None)
Quarter: 2012Q2

REPORT INFORMATION
  Report Type: 
  Country: None (occurrence: None)
  Receive Date: 20120530
  Receipt Date: 20120515
  Transmission Date: 20120825
  Serious: No
  Sender: FDA-Public Use
  Company Number: US-B.I. PHARMACEUTICALS,INC./RIDGEFIELD-2011-BP-28768BP

PATIENT
  Sex: Female

DRUGS (8)
  1. PRAVASTATIN [Concomitant]
     Indication: BLOOD CHOLESTEROL INCREASED
     Dosage: 40 MG
     Route: 048
  2. LOSARTAN POTASSIUM [Concomitant]
     Indication: HYPERTENSION
     Dosage: 50 MG
     Route: 048
  3. COENZYME Q10 [Concomitant]
     Indication: ROUTINE HEALTH MAINTENANCE
  4. NEXIUM [Concomitant]
     Indication: GASTROOESOPHAGEAL REFLUX DISEASE
     Dosage: 40 MG
     Route: 048
  5. PRADAXA [Suspect]
     Indication: CEREBROVASCULAR ACCIDENT PROPHYLAXIS
     Dosage: 300 MG
     Route: 048
     Dates: start: 20111117
  6. DILTIAZEM [Concomitant]
     Indication: HYPERTENSION
     Dosage: 60 MG
     Route: 048
  7. PRADAXA [Suspect]
     Indication: ATRIAL FIBRILLATION
  8. LEVOXYL [Concomitant]
     Indication: HYPOTHYROIDISM
     Dosage: 50 MCG
     Route: 048

REACTIONS (10)
  - CHEST DISCOMFORT [None]
  - CARDIAC ENZYMES INCREASED [None]
  - ABDOMINAL DISCOMFORT [None]
  - HYPOTENSION [None]
  - BALANCE DISORDER [None]
  - FATIGUE [None]
  - NAUSEA [None]
  - FEELING ABNORMAL [None]
  - CHEST PAIN [None]
  - ASTHENIA [None]
